FAERS Safety Report 5155959-4 (Version None)
Quarter: 2006Q4

REPORT INFORMATION
  Report Type: 
  Country: None (occurrence: None)
  Receive Date: 20061114
  Receipt Date: 20061101
  Transmission Date: 20070319
  Serious: Yes (Hospitalization)
  Sender: FDA-Public Use
  Company Number: 232054

PATIENT
  Age: 71 Year
  Sex: Female

DRUGS (2)
  1. AVASTIN [Suspect]
     Indication: NON-SMALL CELL LUNG CANCER
     Dosage: 200 MG, QOW, INTRAVENOUS
     Route: 042
     Dates: start: 20061026
  2. TOPOTECAN (TOPOTECAN HYDROCHLORIDE) [Suspect]
     Indication: NON-SMALL CELL LUNG CANCER
     Dosage: 7.6 MG, 1/WEEK, INTRAVENOUS
     Dates: start: 20061026

REACTIONS (8)
  - ASTHENIA [None]
  - FATIGUE [None]
  - HEADACHE [None]
  - MYALGIA [None]
  - NAUSEA [None]
  - PNEUMOCOCCAL SEPSIS [None]
  - STREPTOCOCCAL BACTERAEMIA [None]
  - URINARY TRACT INFECTION [None]
